FAERS Safety Report 7620552-8 (Version None)
Quarter: 2011Q3

REPORT INFORMATION
  Report Type: 
  Country: None (occurrence: None)
  Receive Date: 20110719
  Receipt Date: 20110708
  Transmission Date: 20111222
  Serious: Yes (Hospitalization, Disabling, Other)
  Sender: FDA-Public Use
  Company Number: US-PFIZER INC-2011154649

PATIENT
  Sex: Female
  Weight: 81.63 kg

DRUGS (12)
  1. LASIX [Suspect]
     Indication: OEDEMA PERIPHERAL
     Dosage: UNK, 2 TIMES A DAY
     Route: 048
  2. NEURONTIN [Suspect]
     Indication: NERVE INJURY
     Dosage: 300 MG, 4X/DAY
     Route: 048
  3. GLIPIZIDE [Concomitant]
     Indication: DIABETES MELLITUS
     Dosage: UNK, TWO TIMES A DAY
     Route: 048
  4. GLUCOPHAGE [Concomitant]
     Indication: DIABETES MELLITUS
     Dosage: UNK TWO TIMES A DAY
     Route: 048
  5. LYRICA [Suspect]
     Dosage: 100 MG, 3X/DAY
     Route: 048
  6. HYDROCHLOROTHIAZIDE [Concomitant]
     Indication: BLOOD PRESSURE ABNORMAL
     Dosage: DAILY
     Route: 048
  7. LASIX [Suspect]
     Dosage: UNKNOWN DOSE DAILY
  8. PERCOCET [Concomitant]
     Indication: PAIN
     Dosage: UNK
     Route: 048
  9. LYRICA [Suspect]
     Indication: NERVE INJURY
     Dosage: 100 MG (UNKNOWN FREQUENCY) DAILY
     Route: 048
  10. NEURONTIN [Suspect]
     Dosage: 600 MG, 3X/DAY
     Route: 048
  11. MORPHINE SULFATE [Suspect]
     Indication: NERVE INJURY
     Dosage: 60 MG, 2X/DAY
     Route: 048
  12. LANTUS [Concomitant]
     Indication: DIABETES MELLITUS
     Dosage: 30 IU, DAILY

REACTIONS (5)
  - MUSCLE SPASMS [None]
  - DIABETES MELLITUS [None]
  - OEDEMA PERIPHERAL [None]
  - ACTIVITIES OF DAILY LIVING IMPAIRED [None]
  - VASCULAR GRAFT [None]
